FAERS Safety Report 19513055 (Version 1)
Quarter: 2021Q3

REPORT INFORMATION
  Report Type: Spontaneous
  Country: US (occurrence: US)
  Receive Date: 20210709
  Receipt Date: 20210709
  Transmission Date: 20211014
  Serious: Yes (Other)
  Sender: FDA-Public Use
  Company Number: US-PFIZER INC-2021769126

PATIENT
  Age: 30 Week
  Sex: Female
  Weight: 1.5 kg

DRUGS (1)
  1. FENTANYL CITRATE. [Suspect]
     Active Substance: FENTANYL CITRATE
     Dosage: 3 UG/KG/H.

REACTIONS (5)
  - Hydronephrosis [Unknown]
  - Urinary tract obstruction [Unknown]
  - Microcolon [Unknown]
  - Neurogenic bladder [Unknown]
  - Urinary retention [Unknown]
